FAERS Safety Report 24733588 (Version 1)
Quarter: 2024Q4

REPORT INFORMATION
  Report Type: Spontaneous
  Country: US (occurrence: US)
  Receive Date: 20241213
  Receipt Date: 20241213
  Transmission Date: 20250115
  Serious: No
  Sender: NOVO NORDISK
  Company Number: US-NOVOPROD-1203014

PATIENT
  Age: 72 Year
  Sex: Male

DRUGS (2)
  1. LEVEMIR [Suspect]
     Active Substance: INSULIN DETEMIR
     Indication: Type 2 diabetes mellitus
     Dosage: 40-45 UNITS AT NIGHT
     Route: 058
     Dates: start: 2011
  2. LEVEMIR [Suspect]
     Active Substance: INSULIN DETEMIR
     Dosage: 35 U
     Route: 058

REACTIONS (6)
  - Nervousness [Unknown]
  - Dizziness [Unknown]
  - Diabetes mellitus inadequate control [Not Recovered/Not Resolved]
  - Blood glucose decreased [Recovered/Resolved]
  - Product dose omission issue [Unknown]
  - Incorrect dose administered [Unknown]

NARRATIVE: CASE EVENT DATE: 20240218
